FAERS Safety Report 6951220-3 (Version None)
Quarter: 2010Q3

REPORT INFORMATION
  Report Type: 
  Country: None (occurrence: None)
  Receive Date: 20100828
  Receipt Date: 20100319
  Transmission Date: 20110219
  Serious: No
  Sender: FDA-Public Use
  Company Number: US-ABBOTT-10P-163-0633373-00

PATIENT
  Sex: Female
  Weight: 74.91 kg

DRUGS (13)
  1. NIASPAN [Suspect]
     Indication: MYOCARDIAL INFARCTION
     Route: 048
  2. NIASPAN [Suspect]
     Indication: CORONARY ARTERIAL STENT INSERTION
  3. NIASPAN [Suspect]
     Indication: CORONARY ANGIOPLASTY
  4. NIASPAN [Suspect]
     Indication: STENT PLACEMENT
  5. FISH OIL [Concomitant]
     Indication: PRODUCT USED FOR UNKNOWN INDICATION
  6. M.V.I. [Concomitant]
     Indication: PRODUCT USED FOR UNKNOWN INDICATION
  7. UNKNOWN BLOOD PRESSURE MEDICINE [Concomitant]
     Indication: BLOOD PRESSURE
  8. PLAVIX [Concomitant]
     Indication: PRODUCT USED FOR UNKNOWN INDICATION
  9. COUMADIN [Concomitant]
     Indication: PRODUCT USED FOR UNKNOWN INDICATION
  10. ZETIA [Concomitant]
     Indication: PRODUCT USED FOR UNKNOWN INDICATION
  11. VIT D [Concomitant]
     Indication: PRODUCT USED FOR UNKNOWN INDICATION
  12. THYROID MEDICINE [Concomitant]
     Indication: THYROID DISORDER
  13. ASPIRIN [Concomitant]
     Indication: PRODUCT USED FOR UNKNOWN INDICATION

REACTIONS (2)
  - FLUSHING [None]
  - GOUT [None]
